FAERS Safety Report 9974062 (Version 1)
Quarter: 2014Q1

REPORT INFORMATION
  Report Type: Spontaneous
  Country: US (occurrence: US)
  Receive Date: 20140306
  Receipt Date: 20140306
  Transmission Date: 20141002
  Serious: Yes (Hospitalization)
  Sender: FDA-Public Use
  Company Number: US-GLAXOSMITHKLINE-A1062536A

PATIENT
  Age: 70 Year
  Sex: Male

DRUGS (6)
  1. AVODART [Suspect]
     Indication: BENIGN PROSTATIC HYPERPLASIA
     Dosage: .5MG PER DAY
  2. TAMSULOSIN [Concomitant]
  3. ISOSORBIDE [Concomitant]
  4. LORATADINE [Concomitant]
  5. PANTOPRAZOLE [Concomitant]
  6. GLIPIZIDE [Concomitant]

REACTIONS (3)
  - Plasma cell myeloma [Not Recovered/Not Resolved]
  - Bone marrow transplant [Unknown]
  - Plasma cell myeloma in remission [Unknown]
